FAERS Safety Report 17717316 (Version 1)
Quarter: 2020Q2

REPORT INFORMATION
  Report Type: Spontaneous
  Country: US (occurrence: US)
  Receive Date: 20200428
  Receipt Date: 20200428
  Transmission Date: 20200714
  Serious: No
  Sender: FDA-Public Use
  Company Number: US-ACCORD-170999

PATIENT
  Sex: Male

DRUGS (1)
  1. DAPTOMYCIN ACCORD [Suspect]
     Active Substance: DAPTOMYCIN
     Indication: PRODUCT USED FOR UNKNOWN INDICATION
     Dosage: STRENGTH: 50 MG/ML

REACTIONS (3)
  - Muscle twitching [Recovered/Resolved]
  - Chills [Recovered/Resolved]
  - Tremor [Recovered/Resolved]
